FAERS Safety Report 4352198-1 (Version None)
Quarter: 2004Q2

REPORT INFORMATION
  Report Type: 
  Country: None (occurrence: None)
  Receive Date: 20040428
  Receipt Date: 20040413
  Transmission Date: 20050107
  Serious: Yes (Life-Threatening)
  Sender: FDA-Public Use
  Company Number: 205675

PATIENT
  Age: 56 Year
  Sex: Male

DRUGS (7)
  1. MABTHERA(RITUXIMAB) CONC FOR SOLUTION FOR INFUSION [Suspect]
     Indication: NON-HODGKIN'S LYMPHOMA
     Dosage: 700 MG, INTRAVENOUS
     Route: 042
     Dates: start: 20020404, end: 20020628
  2. ROFERON-A [Suspect]
     Indication: LYMPHOMA
     Dosage: 4.5 MU, SUBCUTANEOUS
     Route: 058
     Dates: start: 20020207, end: 20021121
  3. VEPESID [Suspect]
     Indication: LYMPHOMA
     Dosage: 200 MG, INTRAVENOUS
     Route: 042
     Dates: start: 20020207, end: 20020628
  4. CYCLOPHOSPHAMIDE [Suspect]
     Indication: LYMPHOMA
     Dosage: 1200 MG,
  5. PREDNISONE TAB [Suspect]
     Indication: LYMPHOMA
     Dosage: 60 MG, ORAL
     Route: 048
     Dates: start: 20020207, end: 20020628
  6. ADRIABLASTINA (DOXORUBICIN, DOXORUBICIN HYDROCHLORIDE) [Suspect]
     Indication: LYMPHOMA
     Dosage: 50 MG,
     Dates: start: 20020207, end: 20020628
  7. PLATINE-VP16 [Concomitant]

REACTIONS (6)
  - COUGH [None]
  - DRUG EFFECT DECREASED [None]
  - DYSPHONIA [None]
  - GENERAL PHYSICAL HEALTH DETERIORATION [None]
  - LUNG NEOPLASM MALIGNANT [None]
  - LYMPHANGIOSIS CARCINOMATOSA [None]
